FAERS Safety Report 24404912 (Version 1)
Quarter: 2024Q4

REPORT INFORMATION
  Report Type: Report from Study
  Country: US (occurrence: US)
  Receive Date: 20241007
  Receipt Date: 20241007
  Transmission Date: 20250115
  Serious: No
  Sender: ROCHE
  Company Number: US-ROCHE-3547099

PATIENT
  Age: 60 Year
  Sex: Female

DRUGS (17)
  1. GAZYVA [Suspect]
     Active Substance: OBINUTUZUMAB
     Indication: Haematuria
     Route: 065
  2. GAZYVA [Suspect]
     Active Substance: OBINUTUZUMAB
     Indication: Glomerulonephritis membranous
  3. RITUXAN [Suspect]
     Active Substance: RITUXIMAB
     Indication: Product used for unknown indication
     Route: 065
  4. AMLODIPINE [Concomitant]
     Active Substance: AMLODIPINE BESYLATE
     Route: 048
  5. ATORVASTATIN [Concomitant]
     Active Substance: ATORVASTATIN
     Route: 048
  6. BUSPIRONE [Concomitant]
     Active Substance: BUSPIRONE HYDROCHLORIDE
     Route: 048
  7. CITALOPRAM [Concomitant]
     Active Substance: CITALOPRAM
     Route: 048
  8. FAMOTIDINE [Concomitant]
     Active Substance: FAMOTIDINE
     Route: 048
  9. HUMALOG MIX50/50 [Concomitant]
     Active Substance: INSULIN LISPRO
  10. JARDIANCE [Concomitant]
     Active Substance: EMPAGLIFLOZIN
     Route: 048
  11. LOSARTAN [Concomitant]
     Active Substance: LOSARTAN
     Route: 048
  12. LUBRICANT EYE OINTMENT [MINERAL OIL;WHITE PETROLATUM] [Concomitant]
  13. RESTASIS [Concomitant]
     Active Substance: CYCLOSPORINE
     Route: 047
  14. TACROLIMUS [Concomitant]
     Active Substance: TACROLIMUS
     Route: 048
  15. TOPIRAMATE [Concomitant]
     Active Substance: TOPIRAMATE
     Route: 048
  16. VICTOZA [Concomitant]
     Active Substance: LIRAGLUTIDE
  17. WARFARIN [Concomitant]
     Active Substance: WARFARIN
     Route: 048

REACTIONS (2)
  - Off label use [Unknown]
  - Drug hypersensitivity [Unknown]
